FAERS Safety Report 22586016 (Version 1)
Quarter: 2023Q2

REPORT INFORMATION
  Report Type: Spontaneous
  Country: US (occurrence: US)
  Receive Date: 20230610
  Receipt Date: 20230610
  Transmission Date: 20230722
  Serious: Yes (Other)
  Sender: FDA-Public Use
  Company Number: US-009507513-2306USA003223

PATIENT
  Sex: Male

DRUGS (17)
  1. KEYTRUDA [Suspect]
     Active Substance: PEMBROLIZUMAB
     Indication: Renal cell carcinoma
     Dosage: UNK
  2. AXITINIB [Concomitant]
     Active Substance: AXITINIB
     Indication: Renal cell carcinoma
     Dosage: UNK
  3. LENVATINIB MESYLATE [Concomitant]
     Active Substance: LENVATINIB MESYLATE
     Indication: Renal cell carcinoma
     Dosage: UNK
     Route: 048
  4. EVEROLIMUS [Concomitant]
     Active Substance: EVEROLIMUS
     Indication: Renal cell carcinoma
  5. CABOZANTINIB [Concomitant]
     Active Substance: CABOZANTINIB
     Indication: Renal cell carcinoma
  6. OXYCODONE [Concomitant]
     Active Substance: OXYCODONE
     Indication: Abdominal pain
     Dosage: EXTENDED-RELEASE (ER) OXYCODONE 20 MG EVERY 12 HOURS
  7. OXYCODONE [Concomitant]
     Active Substance: OXYCODONE
     Dosage: IMMEDIATE-RELEASE (IR) OXYCODONE 10 MG EVERY 4 HOURS
  8. MORPHINE [Concomitant]
     Active Substance: MORPHINE
     Indication: Abdominal pain
     Dosage: ER MORPHINE 15 MG EVERY 12 HOURS
  9. MORPHINE [Concomitant]
     Active Substance: MORPHINE
     Dosage: IR MORPHINE 15 MG EVERY 4 HOURS AS NEEDED FOR BREAKTHROUGH PAIN, AVERAGING 4 DOSES PER DAY
  10. MORPHINE [Concomitant]
     Active Substance: MORPHINE
     Dosage: ER MORPHINE WAS INCREASED 30 MG EVERY 12 HOURS WITH MORPHINE 15 MG EVERY 4 HOURS AS NEEDED.
  11. MORPHINE [Concomitant]
     Active Substance: MORPHINE
     Dosage: ER MORPHINE 30 MG EVERY 8 HOURS
  12. ESCITALOPRAM [Concomitant]
     Active Substance: ESCITALOPRAM OXALATE
     Indication: Anxiety
     Dosage: 10 MG DAILY
  13. ESCITALOPRAM [Concomitant]
     Active Substance: ESCITALOPRAM OXALATE
     Indication: Depression
     Dosage: 2.5 MG PRN. DURING THE DAYTIME AND SCHEDULED 5 MG AT BEDTIME
  14. ALPRAZOLAM [Concomitant]
     Active Substance: ALPRAZOLAM
     Indication: Depression
     Dosage: 2 MG AS NEEDED, AVERAGING 2?3 PILLS PER DAY
  15. ALPRAZOLAM [Concomitant]
     Active Substance: ALPRAZOLAM
     Indication: Anxiety
     Dosage: MG THREE TIMES DAILY WITH GRADUAL TAPER OVER 2 WEEKS
  16. OLANZAPINE [Concomitant]
     Active Substance: OLANZAPINE
     Indication: Anxiety
     Dosage: 5 MG EVERY 8 HOURS AS NEEDED
  17. OLANZAPINE [Concomitant]
     Active Substance: OLANZAPINE
     Indication: Insomnia
     Dosage: 2.5 MG PRN. DURING THE DAYTIME AND SCHEDULED 5 MG AT BEDTIME

REACTIONS (1)
  - Pneumonitis [Unknown]
